FAERS Safety Report 6829666-3 (Version None)
Quarter: 2010Q3

REPORT INFORMATION
  Report Type: 
  Country: None (occurrence: None)
  Receive Date: 20100709
  Receipt Date: 20070508
  Transmission Date: 20110219
  Serious: No
  Sender: FDA-Public Use
  Company Number: US-PFIZER INC-2007012994

PATIENT
  Sex: Male
  Weight: 81.65 kg

DRUGS (5)
  1. CHANTIX [Suspect]
     Indication: SMOKING CESSATION THERAPY
     Route: 048
     Dates: start: 20070201
  2. AVAPRO [Concomitant]
     Route: 048
  3. RANITIDINE [Concomitant]
     Route: 048
  4. FISH OIL [Concomitant]
     Route: 048
  5. ACETYLSALICYLIC ACID [Concomitant]
     Route: 048

REACTIONS (3)
  - INSOMNIA [None]
  - NAUSEA [None]
  - PAIN IN JAW [None]
